FAERS Safety Report 7966339-8 (Version None)
Quarter: 2011Q4

REPORT INFORMATION
  Report Type: 
  Country: None (occurrence: None)
  Receive Date: 20111208
  Receipt Date: 20111206
  Transmission Date: 20120403
  Serious: Yes (Hospitalization, Congenital Anomaly, Other)
  Sender: FDA-Public Use
  Company Number: US-PFIZER INC-2011089786

PATIENT
  Sex: Male
  Weight: 3 kg

DRUGS (7)
  1. OXYCODONE AND ACETAMINOPHEN [Concomitant]
     Dosage: 5 MG-325 MG
     Route: 064
  2. ZOLOFT [Suspect]
     Dosage: 100 MG, UNK
     Route: 064
  3. GUAIFENESIN W/DEXTROMETHORPHAN [Concomitant]
     Dosage: GUAIFENESIN 600 MG PLUS DEXTROMETHORPHAN 30 MG
     Route: 064
  4. OXYMETAZOLINE [Concomitant]
     Dosage: 0.05 %, UNK
     Route: 064
  5. IBUPROFEN [Concomitant]
     Dosage: 80 MG, UNK
     Route: 064
  6. MULTI-VITAMINS [Concomitant]
     Dosage: 27MG-1 MG
     Route: 064
  7. ZOLOFT [Suspect]
     Indication: INSOMNIA
     Dosage: 50 MG, UNK
     Route: 064

REACTIONS (17)
  - FOETAL EXPOSURE DURING PREGNANCY [None]
  - SEPSIS NEONATAL [None]
  - INTRAVENTRICULAR HAEMORRHAGE NEONATAL [None]
  - THROMBOCYTOPENIA [None]
  - SINGLE UMBILICAL ARTERY [None]
  - ELECTROCARDIOGRAM QT PROLONGED [None]
  - PATENT DUCTUS ARTERIOSUS [None]
  - UMBILICAL CORD ABNORMALITY [None]
  - RIGHT VENTRICULAR HYPERTROPHY [None]
  - CEREBRAL CYST [None]
  - TRICUSPID VALVE INCOMPETENCE [None]
  - ATRIAL SEPTAL DEFECT [None]
  - TRANSPOSITION OF THE GREAT VESSELS [None]
  - PELVIC VENOUS THROMBOSIS [None]
  - VENTRICULAR SEPTAL DEFECT [None]
  - VENOUS THROMBOSIS LIMB [None]
  - TRISOMY 18 [None]
